FAERS Safety Report 9319293 (Version 1)
Quarter: 2013Q2

REPORT INFORMATION
  Report Type: Report from Study
  Country: BR (occurrence: BR)
  Receive Date: 20130530
  Receipt Date: 20130530
  Transmission Date: 20140414
  Serious: Yes (Other)
  Sender: FDA-Public Use
  Company Number: PHHY2013BR054570

PATIENT
  Sex: Female
  Weight: 58 kg

DRUGS (7)
  1. ACLASTA [Suspect]
     Indication: OSTEOPOROSIS
     Dosage: 5 MG, ONCE A YEAR
     Route: 042
     Dates: start: 2012
  2. TEGRETOL CR [Concomitant]
     Indication: BIPOLAR DISORDER
     Dosage: 0.5 DF (200MG), DAILY
     Route: 048
  3. TEGRETOL CR [Concomitant]
     Dosage: 2.5 DF (400 MG), DAILY
     Route: 048
  4. TRYPTANOL                               /BRA/ [Concomitant]
     Indication: BIPOLAR DISORDER
     Dosage: 2 DF (2 TABLETS), DAILY
     Route: 048
  5. ANGELIQ [Concomitant]
     Indication: HORMONE LEVEL ABNORMAL
     Dosage: 1 DF (1 TABLET),DAILY
     Route: 048
  6. OSCAL D                            /00944201/ [Concomitant]
     Indication: OSTEOPOROSIS
     Dosage: 2 DF (2 TABLETS), DAILY
     Route: 048
  7. PROTOS (STRONTIUM RANELATE) [Concomitant]
     Indication: OSTEOPOROSIS
     Dosage: 1 DF (1 SACHET), DAILY
     Route: 048

REACTIONS (1)
  - Blood sodium decreased [Not Recovered/Not Resolved]
